FAERS Safety Report 25334564 (Version 2)
Quarter: 2025Q2

REPORT INFORMATION
  Report Type: Spontaneous
  Country: US (occurrence: US)
  Receive Date: 20250520
  Receipt Date: 20250528
  Transmission Date: 20250717
  Serious: Yes (Other)
  Sender: AUROBINDO
  Company Number: US-AUROBINDO-AUR-APL-2025-024840

PATIENT
  Age: 71 Year
  Sex: Male

DRUGS (4)
  1. AZACITIDINE [Suspect]
     Active Substance: AZACITIDINE
     Indication: Myelodysplastic syndrome/myeloproliferative neoplasm overlap syndrome
     Route: 058
     Dates: start: 202311
  2. AZACITIDINE [Suspect]
     Active Substance: AZACITIDINE
     Route: 058
     Dates: start: 202312
  3. AZACITIDINE [Suspect]
     Active Substance: AZACITIDINE
     Route: 058
     Dates: start: 202402
  4. ASPIRIN [Concomitant]
     Active Substance: ASPIRIN
     Indication: Embolism
     Route: 065

REACTIONS (7)
  - Angioedema [Unknown]
  - Abdominal pain [Unknown]
  - Dysphonia [Unknown]
  - Oedema [Unknown]
  - Scrotal swelling [Recovered/Resolved]
  - Dysphagia [Recovered/Resolved]
  - Swelling [Recovered/Resolved]
